FAERS Safety Report 4359540-6 (Version None)
Quarter: 2004Q2

REPORT INFORMATION
  Report Type: 
  Country: None (occurrence: None)
  Receive Date: 20040512
  Receipt Date: 20040429
  Transmission Date: 20050107
  Serious: Yes (Disabling)
  Sender: FDA-Public Use
  Company Number: 200206324

PATIENT
  Age: 43 Year
  Sex: Female
  Weight: 58.9676 kg

DRUGS (4)
  1. BOTOX [Suspect]
     Indication: MIGRAINE
     Dosage: 92 UNITS PRN IM
     Dates: start: 20010507
  2. BOTOX [Suspect]
     Indication: SKIN WRINKLING
     Dosage: 92 UNITS PRN IM
     Dates: start: 20010507
  3. IMITREX [Concomitant]
  4. FIORINAL [Concomitant]

REACTIONS (11)
  - BODY TEMPERATURE INCREASED [None]
  - DIARRHOEA [None]
  - DISCOMFORT [None]
  - FIBROMYALGIA [None]
  - MIGRAINE [None]
  - MUSCLE INJURY [None]
  - NAUSEA [None]
  - NIGHT SWEATS [None]
  - PAIN [None]
  - TREMOR [None]
  - URTICARIA [None]
